FAERS Safety Report 4528892-6 (Version None)
Quarter: 2004Q4

REPORT INFORMATION
  Report Type: 
  Country: None (occurrence: None)
  Receive Date: 20041216
  Receipt Date: 20041207
  Transmission Date: 20050328
  Serious: Yes (Life-Threatening)
  Sender: FDA-Public Use
  Company Number: GB-BRISTOL-MYERS SQUIBB COMPANY-12795241

PATIENT
  Age: 63 Year
  Sex: Female

DRUGS (12)
  1. METFORMIN HCL [Suspect]
     Indication: DIABETES MELLITUS NON-INSULIN-DEPENDENT
     Route: 048
     Dates: start: 20040724, end: 20041104
  2. ASPIRIN [Concomitant]
     Route: 048
  3. AMITRIPTYLINE HCL [Concomitant]
     Indication: PAIN
     Route: 048
  4. MEBEVERINE HCL [Concomitant]
     Route: 048
  5. MORPHINE [Concomitant]
     Indication: PAIN
     Route: 048
  6. PERSANTIN [Concomitant]
     Route: 048
  7. CHLORMEZANONE [Concomitant]
  8. ADCAL-D3 [Concomitant]
  9. ISOSORBIDE MONONITRATE [Concomitant]
  10. CO-AMILOFRUSE [Concomitant]
  11. LANSOPRAZOLE [Concomitant]
  12. DIAZEPAM [Concomitant]

REACTIONS (2)
  - LACTIC ACIDOSIS [None]
  - PSYCHOTIC DISORDER [None]
